FAERS Safety Report 7594742-7 (Version None)
Quarter: 2011Q3

REPORT INFORMATION
  Report Type: 
  Country: None (occurrence: None)
  Receive Date: 20110707
  Receipt Date: 20110627
  Transmission Date: 20111222
  Serious: Yes (Hospitalization)
  Sender: FDA-Public Use
  Company Number: FR-JNJFOC-20110701227

PATIENT
  Age: 84 Year
  Sex: Male

DRUGS (14)
  1. LASIX [Concomitant]
     Route: 065
  2. BISOPROLOL FUMARATE [Concomitant]
     Route: 065
  3. LYRICA [Concomitant]
     Route: 065
  4. TRAMADOL HCL [Suspect]
     Indication: PAIN
     Route: 048
     Dates: start: 20110602
  5. CIPROFLOXACIN [Suspect]
     Indication: SKIN ULCER
     Route: 048
     Dates: start: 20110515
  6. BACTRIM DS [Suspect]
     Indication: SKIN ULCER
     Route: 048
     Dates: start: 20110515
  7. ASPIRIN [Concomitant]
     Route: 065
  8. APIDRA [Concomitant]
     Route: 065
  9. TRAMADOL HCL [Suspect]
     Route: 048
     Dates: start: 20110519, end: 20110601
  10. ACETAMINOPHEN [Concomitant]
     Route: 065
  11. LANTUS [Concomitant]
     Route: 065
  12. PIPERACILLIN [Suspect]
     Indication: SKIN ULCER
     Route: 042
     Dates: start: 20110515
  13. PERINDOPRIL ERBUMINE [Concomitant]
     Route: 065
  14. LOVENOX [Concomitant]
     Route: 065

REACTIONS (1)
  - SKIN EXFOLIATION [None]
